FAERS Safety Report 8303766-3 (Version None)
Quarter: 2012Q1

REPORT INFORMATION
  Report Type: 
  Country: None (occurrence: None)
  Receive Date: 20120326
  Receipt Date: 20120103
  Transmission Date: 20120608
  Serious: Yes (Life-Threatening)
  Sender: FDA-Public Use
  Company Number: PHEH2012US000596

PATIENT
  Age: 43 Year
  Sex: Female

DRUGS (1)
  1. TASIGNA [Suspect]
     Indication: CHRONIC MYELOID LEUKAEMIA
     Dosage: 300 MG, BID, ORAL
     Route: 048
     Dates: start: 20110331

REACTIONS (2)
  - HYPERSENSITIVITY [None]
  - FEELING ABNORMAL [None]
